FAERS Safety Report 17432681 (Version 2)
Quarter: 2020Q3

REPORT INFORMATION
  Report Type: Report from Study
  Country: None (occurrence: US)
  Receive Date: 20200218
  Receipt Date: 20200724
  Transmission Date: 20201102
  Serious: Yes (Other)
  Sender: FDA-Public Use
  Company Number: US-ABBVIE-19K-163-2686735-00

PATIENT
  Age: 65 Year
  Sex: Male
  Weight: 122.58 kg

DRUGS (11)
  1. GLIPIZIDE. [Concomitant]
     Active Substance: GLIPIZIDE
     Indication: TYPE 2 DIABETES MELLITUS
  2. ROSUVASTATIN. [Concomitant]
     Active Substance: ROSUVASTATIN
     Indication: TYPE 2 DIABETES MELLITUS
  3. AZATHIPORINE [Suspect]
     Active Substance: AZATHIOPRINE
     Indication: CROHN^S DISEASE
     Route: 065
  4. HUMIRA [Suspect]
     Active Substance: ADALIMUMAB
     Dosage: DAY 29
     Route: 058
  5. HUMIRA [Suspect]
     Active Substance: ADALIMUMAB
     Indication: CROHN^S DISEASE
     Dosage: DAY  1
     Route: 058
     Dates: start: 20190206, end: 20190206
  6. ALLOPURINOL. [Concomitant]
     Active Substance: ALLOPURINOL
     Indication: PRODUCT USED FOR UNKNOWN INDICATION
  7. HUMIRA [Suspect]
     Active Substance: ADALIMUMAB
     Dosage: DAY 15
     Route: 058
     Dates: start: 20190306, end: 20190320
  8. METPHORMIN [Concomitant]
     Indication: TYPE 2 DIABETES MELLITUS
  9. BUDESONIDE. [Suspect]
     Active Substance: BUDESONIDE
     Indication: PRODUCT USED FOR UNKNOWN INDICATION
     Route: 065
     Dates: end: 20190415
  10. LISINOPRIL. [Concomitant]
     Active Substance: LISINOPRIL
     Indication: TYPE 2 DIABETES MELLITUS
  11. HYDROCHOLOTHIAZIDE [Concomitant]
     Indication: TYPE 2 DIABETES MELLITUS

REACTIONS (30)
  - Cataract [Not Recovered/Not Resolved]
  - Loss of personal independence in daily activities [Recovered/Resolved]
  - Skin lesion [Unknown]
  - Depressed mood [Unknown]
  - Headache [Not Recovered/Not Resolved]
  - Nausea [Recovered/Resolved]
  - Device difficult to use [Recovered/Resolved]
  - Diabetes mellitus [Recovered/Resolved]
  - Muscle spasms [Recovered/Resolved]
  - Loss of personal independence in daily activities [Recovered/Resolved]
  - Exostosis [Unknown]
  - Blood glucose increased [Unknown]
  - Catheterisation cardiac [Unknown]
  - Injection site bruising [Recovering/Resolving]
  - Nausea [Recovered/Resolved]
  - Diarrhoea [Recovered/Resolved]
  - Device issue [Unknown]
  - Constipation [Unknown]
  - Flushing [Unknown]
  - Diarrhoea [Unknown]
  - Vomiting [Recovered/Resolved]
  - Insomnia [Recovered/Resolved]
  - Insomnia [Unknown]
  - Abdominal pain [Not Recovered/Not Resolved]
  - Diarrhoea [Recovered/Resolved]
  - Liver disorder [Unknown]
  - Hepatic enzyme increased [Recovering/Resolving]
  - Loss of personal independence in daily activities [Unknown]
  - Injection site haemorrhage [Unknown]
  - Rash papular [Unknown]

NARRATIVE: CASE EVENT DATE: 2019
